FAERS Safety Report 22830619 (Version 5)
Quarter: 2025Q2

REPORT INFORMATION
  Report Type: Report from Study
  Country: CL (occurrence: CL)
  Receive Date: 20230817
  Receipt Date: 20250513
  Transmission Date: 20250717
  Serious: Yes (Hospitalization, Disabling, Other)
  Sender: NOVARTIS
  Company Number: CL-002147023-NVSC2023CL177327

PATIENT
  Age: 74 Year
  Sex: Male

DRUGS (9)
  1. COSENTYX [Suspect]
     Active Substance: SECUKINUMAB
     Indication: Psoriasis
     Dosage: 300 MG, QW
     Route: 058
  2. COSENTYX [Suspect]
     Active Substance: SECUKINUMAB
     Indication: Pustular psoriasis
     Dosage: 150 MG, QW
     Route: 058
  3. COSENTYX [Suspect]
     Active Substance: SECUKINUMAB
     Dosage: 150 MG, QMO
     Route: 058
  4. COSENTYX [Suspect]
     Active Substance: SECUKINUMAB
     Dosage: 150 MG, QMO
     Route: 058
     Dates: start: 20230703
  5. COSENTYX [Suspect]
     Active Substance: SECUKINUMAB
     Dosage: 150 MG, QMO
     Route: 058
  6. COSENTYX [Suspect]
     Active Substance: SECUKINUMAB
     Dosage: 300 MG, QMO
     Route: 058
  7. COSENTYX [Suspect]
     Active Substance: SECUKINUMAB
     Dosage: 150 MG, QMO
     Route: 058
  8. COSENTYX [Suspect]
     Active Substance: SECUKINUMAB
     Dosage: 150 MG, (300 MG), QMO
     Route: 058
  9. COSENTYX [Suspect]
     Active Substance: SECUKINUMAB
     Route: 065
     Dates: start: 20250502

REACTIONS (21)
  - Psoriasis [Recovering/Resolving]
  - Arthralgia [Unknown]
  - Gait disturbance [Unknown]
  - Autoimmune disorder [Unknown]
  - Colon cancer [Unknown]
  - Small intestine carcinoma [Unknown]
  - Prostate cancer [Unknown]
  - Malignant melanoma [Unknown]
  - Hepatic cirrhosis [Unknown]
  - Generalised pustular psoriasis [Unknown]
  - Erythema [Unknown]
  - Skin warm [Unknown]
  - Skin discomfort [Unknown]
  - Pigmentation disorder [Unknown]
  - Skin disorder [Unknown]
  - Pain [Unknown]
  - Malaise [Unknown]
  - Metatarsalgia [Unknown]
  - Flank pain [Unknown]
  - Off label use [Unknown]
  - Drug ineffective [Unknown]
